FAERS Safety Report 6212858-4 (Version None)
Quarter: 2009Q2

REPORT INFORMATION
  Report Type: 
  Country: None (occurrence: None)
  Receive Date: 20090603
  Receipt Date: 20090521
  Transmission Date: 20091009
  Serious: Yes (Other)
  Sender: FDA-Public Use
  Company Number: PHHY2009IT19777

PATIENT
  Sex: Male

DRUGS (3)
  1. EXELON [Suspect]
     Indication: VASCULAR ENCEPHALOPATHY
     Dosage: 4.6 MG/ 24 H
     Route: 062
     Dates: start: 20090515, end: 20090515
  2. COUMADIN [Concomitant]
     Dosage: 5 MG, UNK
     Route: 048
  3. ASPIRIN [Concomitant]
     Dosage: 100 MG, UNK
     Route: 048

REACTIONS (4)
  - DIZZINESS [None]
  - GAIT DISTURBANCE [None]
  - LOSS OF CONSCIOUSNESS [None]
  - PETIT MAL EPILEPSY [None]
